FAERS Safety Report 12800096 (Version 1)
Quarter: 2016Q3

REPORT INFORMATION
  Report Type: Spontaneous
  Country: BR (occurrence: BR)
  Receive Date: 20160930
  Receipt Date: 20160930
  Transmission Date: 20161109
  Serious: Yes (Other)
  Sender: FDA-Public Use
  Company Number: BR-ELI_LILLY_AND_COMPANY-BR201609007688

PATIENT
  Sex: Male
  Weight: 90 kg

DRUGS (2)
  1. CIALIS [Suspect]
     Active Substance: TADALAFIL
     Dosage: UNK
  2. CIALIS [Suspect]
     Active Substance: TADALAFIL
     Dosage: 1 DF, UNKNOWN
     Route: 065

REACTIONS (7)
  - Arthralgia [Unknown]
  - Joint stiffness [Unknown]
  - Flank pain [Unknown]
  - Gait disturbance [Unknown]
  - Spinal pain [Unknown]
  - Musculoskeletal stiffness [Unknown]
  - Pain [Unknown]
